FAERS Safety Report 8778899 (Version 3)
Quarter: 2018Q4

REPORT INFORMATION
  Report Type: Spontaneous
  Country: FR (occurrence: FR)
  Receive Date: 20120907
  Receipt Date: 20181108
  Transmission Date: 20190205
  Serious: Yes (Congenital Anomaly, Other)
  Sender: FDA-Public Use
  Company Number: FR-ELI_LILLY_AND_COMPANY-FR201209000139

PATIENT
  Age: 0 Day
  Sex: Female
  Weight: 2.7 kg

DRUGS (8)
  1. PROZAC [Suspect]
     Active Substance: FLUOXETINE HYDROCHLORIDE
     Indication: PERINATAL DEPRESSION
     Dosage: 1 DF, QD
     Route: 064
     Dates: start: 20110130, end: 20110916
  2. EFFEXOR [Suspect]
     Active Substance: VENLAFAXINE HYDROCHLORIDE
     Indication: PERINATAL DEPRESSION
     Dosage: UNK UNK, UNKNOWN
     Route: 064
     Dates: end: 20110130
  3. EFFEXOR [Suspect]
     Active Substance: VENLAFAXINE HYDROCHLORIDE
     Indication: PERINATAL DEPRESSION
     Dosage: UNK UNK, UNKNOWN
     Route: 064
     Dates: end: 20110130
  4. PROZAC [Suspect]
     Active Substance: FLUOXETINE HYDROCHLORIDE
     Indication: PERINATAL DEPRESSION
     Dosage: 1 DF, QD
     Route: 064
     Dates: start: 20110130, end: 20110916
  5. DEPAKINE CHRONO [Suspect]
     Active Substance: VALPROATE SODIUM
     Indication: EPILEPSY
     Dosage: 500 MG, BID
     Route: 064
     Dates: start: 20101230, end: 20110916
  6. PROZAC [Suspect]
     Active Substance: FLUOXETINE HYDROCHLORIDE
     Dosage: 1 DF, QD
     Route: 064
     Dates: start: 20110130, end: 20110916
  7. PROZAC [Suspect]
     Active Substance: FLUOXETINE HYDROCHLORIDE
     Dosage: 1 DF, QD
     Route: 064
     Dates: start: 20110130, end: 20110916
  8. DEPAKINE CHRONO [Suspect]
     Active Substance: VALPROATE SODIUM
     Indication: EPILEPSY
     Dosage: 500 MG, BID
     Route: 064
     Dates: start: 20101230, end: 20110916

REACTIONS (3)
  - Polydactyly [Recovered/Resolved]
  - Foetal exposure during pregnancy [Recovered/Resolved]
  - Cardiac aneurysm [Recovered/Resolved]

NARRATIVE: CASE EVENT DATE: 20110916
